FAERS Safety Report 5012162-6 (Version None)
Quarter: 2006Q2

REPORT INFORMATION
  Report Type: 
  Country: None (occurrence: None)
  Receive Date: 20060526
  Receipt Date: 20060516
  Transmission Date: 20061013
  Serious: Yes (Other)
  Sender: FDA-Public Use
  Company Number: US-ABBOTT-06P-163-0333612-00

PATIENT
  Age: 25 Year
  Sex: Female

DRUGS (2)
  1. ABBOKINASE [Suspect]
     Indication: ISCHAEMIC STROKE
     Dosage: LOCAL
  2. ABBOKINASE [Suspect]

REACTIONS (2)
  - ABORTION SPONTANEOUS [None]
  - CEREBRAL HAEMORRHAGE [None]
